FAERS Safety Report 8950815 (Version 1)
Quarter: 2012Q4

REPORT INFORMATION
  Report Type: Spontaneous
  Country: US (occurrence: None)
  Receive Date: 20121204
  Receipt Date: 20121204
  Transmission Date: 20130627
  Serious: Yes (Hospitalization)
  Sender: FDA-Public Use
  Company Number: None

PATIENT
  Age: 66 Year
  Sex: Female

DRUGS (3)
  1. PEGASYS [Suspect]
     Indication: HEPATITIS C
     Dosage: qweek
     Route: 058
     Dates: start: 20121003, end: 20121113
  2. RIBASPHERE [Suspect]
     Indication: HEPATITIS C
     Dosage: daily in bid dosin
     Route: 048
     Dates: start: 20121103, end: 20121113
  3. INCIVEK [Concomitant]

REACTIONS (3)
  - Anaemia [None]
  - Hypokalaemia [None]
  - Pneumothorax [None]
